FAERS Safety Report 4908765-7 (Version None)
Quarter: 2006Q1

REPORT INFORMATION
  Report Type: 
  Country: None (occurrence: None)
  Receive Date: 20060210
  Receipt Date: 20051114
  Transmission Date: 20060701
  Serious: No
  Sender: FDA-Public Use
  Company Number: US-GLAXOSMITHKLINE-A0582177A

PATIENT
  Sex: Male

DRUGS (3)
  1. PAXIL CR [Suspect]
     Dosage: 75MG PER DAY
     Route: 048
  2. VITORIN [Concomitant]
  3. PLAVIX [Concomitant]

REACTIONS (4)
  - ANXIETY [None]
  - DEPRESSION [None]
  - DRUG INEFFECTIVE [None]
  - HYPOAESTHESIA [None]
